FAERS Safety Report 7541325-0 (Version None)
Quarter: 2011Q2

REPORT INFORMATION
  Report Type: 
  Country: None (occurrence: None)
  Receive Date: 20110612
  Receipt Date: 20110602
  Transmission Date: 20111010
  Serious: No
  Sender: FDA-Public Use
  Company Number: US-ROXANE LABORATORIES, INC.-2011-RO-00649RO

PATIENT
  Sex: Female

DRUGS (1)
  1. BUTORPHANOL TARATRATE [Suspect]
     Indication: PAIN
     Route: 045

REACTIONS (1)
  - DRUG INEFFECTIVE [None]
